FAERS Safety Report 9382089 (Version 2)
Quarter: 2015Q1

REPORT INFORMATION
  Report Type: Spontaneous
  Country: US (occurrence: US)
  Receive Date: 20130703
  Receipt Date: 20150209
  Transmission Date: 20150721
  Serious: Yes (Other)
  Sender: FDA-Public Use
  Company Number: US-ELI_LILLY_AND_COMPANY-US201306009162

PATIENT
  Age: 45 Year
  Sex: Female

DRUGS (5)
  1. EFFIENT [Suspect]
     Active Substance: PRASUGREL HYDROCHLORIDE
     Indication: CEREBROVASCULAR OPERATION
     Dosage: 60 MG, UNKNOWN
     Route: 048
  2. EFFIENT [Suspect]
     Active Substance: PRASUGREL HYDROCHLORIDE
     Dosage: 10 MG, QD
     Route: 048
  3. CONTRAST MEDIA [Concomitant]
     Active Substance: UNSPECIFIED INGREDIENT
     Indication: VASCULAR OPERATION
  4. ASPIRIN                            /00002701/ [Concomitant]
     Active Substance: ASPIRIN
     Indication: VASCULAR OPERATION
     Dosage: 325 MG, QD
     Route: 048
  5. MANNITOL. [Concomitant]
     Active Substance: MANNITOL
     Indication: CEREBRAL HAEMORRHAGE
     Route: 042

REACTIONS (5)
  - Hydrocephalus [Recovered/Resolved]
  - VIth nerve paralysis [Recovered/Resolved]
  - Vessel perforation [Recovered/Resolved]
  - Subarachnoid haemorrhage [Recovered/Resolved]
  - Intraventricular haemorrhage [Recovered/Resolved]
